FAERS Safety Report 8203487-1 (Version None)
Quarter: 2012Q1

REPORT INFORMATION
  Report Type: 
  Country: None (occurrence: None)
  Receive Date: 20120313
  Receipt Date: 20120302
  Transmission Date: 20120608
  Serious: Yes (Hospitalization)
  Sender: FDA-Public Use
  Company Number: US-BIOGENIDEC-2011BI040409

PATIENT
  Age: 53 Year
  Sex: Female

DRUGS (9)
  1. ZANAFLEX [Concomitant]
  2. TAURINE [Concomitant]
  3. SELENIUM [Concomitant]
  4. AVONEX [Suspect]
     Indication: MULTIPLE SCLEROSIS
     Route: 030
     Dates: start: 20000801, end: 20100504
  5. TRYPTOPHAN [Concomitant]
  6. BLACK COHOSH [Concomitant]
  7. CALCIUM [Concomitant]
  8. AMITRIPTYLINE HCL [Concomitant]
  9. FLAXSEED OIL [Concomitant]

REACTIONS (4)
  - MULTIPLE SCLEROSIS RELAPSE [None]
  - CORONARY ARTERY OCCLUSION [None]
  - MYOCARDIAL INFARCTION [None]
  - INVESTIGATION ABNORMAL [None]
